FAERS Safety Report 6506231-9 (Version None)
Quarter: 2009Q4

REPORT INFORMATION
  Report Type: 
  Country: None (occurrence: None)
  Receive Date: 20091218
  Receipt Date: 20091214
  Transmission Date: 20100525
  Serious: Yes (Death, Hospitalization)
  Sender: FDA-Public Use
  Company Number: PHHY2009GB52341

PATIENT
  Sex: Male

DRUGS (9)
  1. CLOZARIL [Suspect]
     Dosage: UNK
     Dates: start: 20031104
  2. LANSOPRAZOLE [Concomitant]
     Dosage: 30 MG, UNK
  3. METFORMIN HCL [Concomitant]
     Dosage: 1000 MG, UNK
  4. DOXYCYCLINE [Concomitant]
     Dosage: 100 MG, BID
  5. METOCLOPRAMIDE [Concomitant]
     Dosage: 10 MG, TDS
  6. RANITIDINE [Concomitant]
     Dosage: 75 MG, BID
  7. LACTULOSE [Concomitant]
     Dosage: 10 MG, BID
  8. BISOPROLOL [Concomitant]
     Dosage: 2.5 MG, UNK
  9. CLOPIDOGREL [Concomitant]
     Dosage: 75 MG, UNK

REACTIONS (2)
  - GENERAL PHYSICAL HEALTH DETERIORATION [None]
  - HAEMOGLOBIN DECREASED [None]
